FAERS Safety Report 5223726-9 (Version None)
Quarter: 2007Q1

REPORT INFORMATION
  Report Type: 
  Country: None (occurrence: None)
  Receive Date: 20070130
  Receipt Date: 20070117
  Transmission Date: 20070707
  Serious: Yes (Hospitalization)
  Sender: FDA-Public Use
  Company Number: FR-PFIZER INC-2007005397

PATIENT
  Age: 52 Year
  Sex: Female

DRUGS (1)
  1. ARTHROTEC [Suspect]
     Indication: ARTHRALGIA
     Route: 048
     Dates: start: 20061118, end: 20061128

REACTIONS (1)
  - PANCREATITIS ACUTE [None]
